FAERS Safety Report 10176076 (Version 6)
Quarter: 2017Q1

REPORT INFORMATION
  Report Type: Report from Study
  Country: BR (occurrence: BR)
  Receive Date: 20140516
  Receipt Date: 20170216
  Transmission Date: 20170428
  Serious: Yes (Hospitalization, Other)
  Sender: FDA-Public Use
  Company Number: BR-ROCHE-1303135

PATIENT
  Age: 55 Year
  Sex: Female
  Weight: 94 kg

DRUGS (14)
  1. VECASTEN [Concomitant]
     Indication: CARDIOVASCULAR DISORDER
  2. OMEGA-3 ACIDS [Concomitant]
     Active Substance: OMEGA-3 FATTY ACIDS
  3. MODURETIC 5-50 [Concomitant]
     Active Substance: AMILORIDE HYDROCHLORIDE\HYDROCHLOROTHIAZIDE
     Indication: HYPERTENSION
  4. TRAMAL [Concomitant]
     Active Substance: TRAMADOL
     Indication: PAIN
  5. VECASTEN [Concomitant]
     Indication: CARDIOVASCULAR DISORDER
  6. MABTHERA [Suspect]
     Active Substance: RITUXIMAB
     Indication: RHEUMATOID ARTHRITIS
     Dosage: MOST RECENT DOSE: 29/APR/2016
     Route: 042
     Dates: start: 20091201
  7. PURAN [Concomitant]
     Active Substance: LEVOTHYROXINE SODIUM
  8. PARACETAMOL [Concomitant]
     Active Substance: ACETAMINOPHEN
     Indication: PAIN
     Route: 065
  9. PREDSIM [Suspect]
     Active Substance: PREDNISOLONE
     Indication: PAIN
     Route: 065
  10. DEPURA [Concomitant]
     Active Substance: CHOLECALCIFEROL
     Indication: PRODUCT USED FOR UNKNOWN INDICATION
     Route: 065
  11. PARACETAMOL [Concomitant]
     Active Substance: ACETAMINOPHEN
     Indication: PAIN
  12. NEXIUM [Concomitant]
     Active Substance: ESOMEPRAZOLE MAGNESIUM
     Indication: GASTRIC DISORDER
     Route: 065
  13. OXYCONTIN [Concomitant]
     Active Substance: OXYCODONE HYDROCHLORIDE
     Route: 065
  14. MODURETIC 5-50 [Concomitant]
     Active Substance: AMILORIDE HYDROCHLORIDE\HYDROCHLOROTHIAZIDE
     Indication: FLUID RETENTION

REACTIONS (15)
  - Limb injury [Unknown]
  - Hypertension [Not Recovered/Not Resolved]
  - Osteoporosis [Unknown]
  - Fall [Unknown]
  - Arthropathy [Recovering/Resolving]
  - Joint injury [Recovered/Resolved]
  - Phlebitis [Recovering/Resolving]
  - Fibromyalgia [Unknown]
  - Swelling [Unknown]
  - Erysipelas [Recovered/Resolved]
  - Fall [Unknown]
  - Immunodeficiency [Unknown]
  - Osteoarthritis [Unknown]
  - Joint swelling [Unknown]
  - Influenza [Unknown]

NARRATIVE: CASE EVENT DATE: 20160915
